FAERS Safety Report 6708079-9 (Version None)
Quarter: 2010Q2

REPORT INFORMATION
  Report Type: 
  Country: None (occurrence: None)
  Receive Date: 20100503
  Receipt Date: 20091120
  Transmission Date: 20101027
  Serious: No
  Sender: FDA-Public Use
  Company Number: US-ASTRAZENECA-2009SE27864

PATIENT
  Age: 504 Month
  Sex: Female

DRUGS (5)
  1. NEXIUM [Suspect]
     Indication: GASTROOESOPHAGEAL REFLUX DISEASE
     Route: 048
     Dates: start: 20090101, end: 20090601
  2. NEXIUM [Suspect]
     Route: 048
     Dates: start: 20090501
  3. DILAUDID [Concomitant]
  4. FLEXERIL [Concomitant]
  5. ALBUTEROL [Concomitant]

REACTIONS (3)
  - CHEST PAIN [None]
  - OESOPHAGEAL ACHALASIA [None]
  - TREATMENT NONCOMPLIANCE [None]
